FAERS Safety Report 10357652 (Version 1)
Quarter: 2014Q3

REPORT INFORMATION
  Report Type: Spontaneous
  Country: US (occurrence: None)
  Receive Date: 20140730
  Receipt Date: 20140730
  Transmission Date: 20150326
  Serious: Yes (Other)
  Sender: FDA-Public Use
  Company Number: None

PATIENT
  Age: 93 Year
  Sex: Male
  Weight: 74.84 kg

DRUGS (1)
  1. AMIODARONE [Suspect]
     Active Substance: AMIODARONE
     Indication: ARRHYTHMIA
     Dosage: 2 PILLS TWICE DAILY TAKEN BY MOUTH
     Route: 048
     Dates: start: 20140623, end: 20140701

REACTIONS (7)
  - Constipation [None]
  - Muscular weakness [None]
  - Blood pressure increased [None]
  - Therapy cessation [None]
  - Treatment failure [None]
  - Arrhythmia [None]
  - Malaise [None]

NARRATIVE: CASE EVENT DATE: 20140623
